FAERS Safety Report 9003682 (Version 1)
Quarter: 2013Q1

REPORT INFORMATION
  Report Type: Spontaneous
  Country: US (occurrence: US)
  Receive Date: 20130108
  Receipt Date: 20130108
  Transmission Date: 20140127
  Serious: No
  Sender: FDA-Public Use
  Company Number: US-GLAXOSMITHKLINE-A0960233A

PATIENT
  Age: 71 Year
  Sex: Male

DRUGS (4)
  1. LOVAZA [Suspect]
     Indication: BLOOD TRIGLYCERIDES INCREASED
     Dosage: 2CAP TWICE PER DAY
     Route: 048
  2. AVODART [Concomitant]
  3. ZETIA [Concomitant]
  4. PREVACID [Concomitant]

REACTIONS (2)
  - Eructation [Unknown]
  - Dysgeusia [Unknown]
